FAERS Safety Report 9792329 (Version 1)
Quarter: 2014Q1

REPORT INFORMATION
  Report Type: Spontaneous
  Country: US (occurrence: US)
  Receive Date: 20140102
  Receipt Date: 20140102
  Transmission Date: 20141002
  Serious: No
  Sender: FDA-Public Use
  Company Number: US-BIOGENIDEC-2013BI122912

PATIENT
  Sex: 0

DRUGS (5)
  1. TECFIDERA [Suspect]
     Indication: PRODUCT USED FOR UNKNOWN INDICATION
  2. BETASERON [Concomitant]
  3. COPAXONE [Concomitant]
  4. TYSABRI [Concomitant]
  5. GILENYA [Concomitant]

REACTIONS (3)
  - Musculoskeletal stiffness [Unknown]
  - Decreased appetite [Unknown]
  - Multiple sclerosis relapse [Unknown]
